FAERS Safety Report 24846436 (Version 1)
Quarter: 2025Q1

REPORT INFORMATION
  Report Type: Spontaneous
  Country: US (occurrence: US)
  Receive Date: 20250115
  Receipt Date: 20250115
  Transmission Date: 20250409
  Serious: Yes (Life-Threatening, Hospitalization, Other)
  Sender: BRISTOL-MYERS SQUIBB COMPANY
  Company Number: US-BRISTOL-MYERS SQUIBB COMPANY-2025-004249

PATIENT
  Age: 59 Year
  Sex: Male
  Weight: 90.1 kg

DRUGS (9)
  1. REVLIMID [Suspect]
     Active Substance: LENALIDOMIDE
     Indication: Diffuse large B-cell lymphoma
     Route: 048
     Dates: start: 20240912
  2. LONCASTUXIMAB TESIRINE [Concomitant]
     Active Substance: LONCASTUXIMAB TESIRINE
     Indication: Product used for unknown indication
     Dates: start: 20240912
  3. TYLENOL [Concomitant]
     Active Substance: ACETAMINOPHEN
     Indication: Product used for unknown indication
  4. NESINA [Concomitant]
     Active Substance: ALOGLIPTIN BENZOATE
     Indication: Product used for unknown indication
  5. LIPITOR [Concomitant]
     Active Substance: ATORVASTATIN CALCIUM
     Indication: Product used for unknown indication
  6. JARDIANCE [Concomitant]
     Active Substance: EMPAGLIFLOZIN
     Indication: Product used for unknown indication
  7. GABAPENTIN [Concomitant]
     Active Substance: GABAPENTIN
     Indication: Product used for unknown indication
  8. METFORMIN [Concomitant]
     Active Substance: METFORMIN HYDROCHLORIDE
     Indication: Product used for unknown indication
  9. OMEPRAZOLE [Concomitant]
     Active Substance: OMEPRAZOLE
     Indication: Product used for unknown indication

REACTIONS (8)
  - Thrombocytopenia [Unknown]
  - Febrile neutropenia [Unknown]
  - Dehydration [Unknown]
  - Malignant neoplasm progression [Unknown]
  - Off label use [Unknown]
  - Dyspnoea [Unknown]
  - Secretion discharge [Unknown]
  - Dysphagia [Unknown]

NARRATIVE: CASE EVENT DATE: 20240919
